FAERS Safety Report 8405503-0 (Version None)
Quarter: 2012Q2

REPORT INFORMATION
  Report Type: 
  Country: None (occurrence: None)
  Receive Date: 20120604
  Receipt Date: 20120525
  Transmission Date: 20120825
  Serious: No
  Sender: FDA-Public Use
  Company Number: US-BIOGENIDEC-2011BI043549

PATIENT
  Sex: Female

DRUGS (1)
  1. TYSABRI [Suspect]
     Indication: MULTIPLE SCLEROSIS
     Route: 042
     Dates: start: 20111104

REACTIONS (11)
  - APHASIA [None]
  - DIZZINESS [None]
  - ABASIA [None]
  - MENTAL IMPAIRMENT [None]
  - SOMNOLENCE [None]
  - FATIGUE [None]
  - COGNITIVE DISORDER [None]
  - URTICARIA [None]
  - DYSARTHRIA [None]
  - FEELING HOT [None]
  - MEMORY IMPAIRMENT [None]
